FAERS Safety Report 11179520 (Version 1)
Quarter: 2015Q2

REPORT INFORMATION
  Report Type: Report from Study
  Country: US (occurrence: US)
  Receive Date: 20150611
  Receipt Date: 20150611
  Transmission Date: 20150821
  Serious: Yes (Life-Threatening, Other)
  Sender: FDA-Public Use
  Company Number: US-ROCHE-1561800

PATIENT

DRUGS (1)
  1. RITUXIMAB [Suspect]
     Active Substance: RITUXIMAB
     Indication: PROPHYLAXIS AGAINST TRANSPLANT REJECTION
     Route: 065

REACTIONS (6)
  - Hypotension [Recovered/Resolved]
  - Systemic inflammatory response syndrome [Recovered/Resolved]
  - Rhinovirus infection [Recovered/Resolved]
  - Implantable defibrillator insertion [Not Recovered/Not Resolved]
  - Liver injury [Recovered/Resolved]
  - Ventricular fibrillation [Recovered/Resolved]

NARRATIVE: CASE EVENT DATE: 20130916
